FAERS Safety Report 14819951 (Version 4)
Quarter: 2018Q3

REPORT INFORMATION
  Report Type: Report from Study
  Country: US (occurrence: US)
  Receive Date: 20180427
  Receipt Date: 20180702
  Transmission Date: 20181010
  Serious: Yes (Other)
  Sender: FDA-Public Use
  Company Number: US-PFIZER INC-2018067892

PATIENT
  Age: 63 Year
  Sex: Female

DRUGS (2)
  1. IBRANCE [Suspect]
     Active Substance: PALBOCICLIB
     Dosage: 75 MG, CYCLIC (DAILY/21 ON 7 OFF)
     Route: 048
     Dates: start: 20180518, end: 20180621
  2. IBRANCE [Suspect]
     Active Substance: PALBOCICLIB
     Indication: BREAST CANCER
     Dosage: 100 MG, CYCLIC [DAILY/21 DAYS ON AND 7 DAYS OFF]
     Route: 048
     Dates: start: 20180214, end: 20180427

REACTIONS (13)
  - Peripheral swelling [Unknown]
  - Candida infection [Unknown]
  - Rhinorrhoea [Not Recovered/Not Resolved]
  - Fatigue [Not Recovered/Not Resolved]
  - Nausea [Recovered/Resolved]
  - Glossodynia [Recovered/Resolved]
  - Nasopharyngitis [Not Recovered/Not Resolved]
  - Oral pain [Recovered/Resolved]
  - Oral candidiasis [Recovered/Resolved]
  - Leukopenia [Unknown]
  - Hot flush [Unknown]
  - Oropharyngeal pain [Recovered/Resolved]
  - Headache [Unknown]

NARRATIVE: CASE EVENT DATE: 2018
